FAERS Safety Report 9849352 (Version 1)
Quarter: 2014Q1

REPORT INFORMATION
  Report Type: Spontaneous
  Country: US (occurrence: None)
  Receive Date: 20140127
  Receipt Date: 20140127
  Transmission Date: 20141002
  Serious: Yes (Hospitalization)
  Sender: FDA-Public Use
  Company Number: None

PATIENT
  Age: 91 Year
  Sex: Male

DRUGS (4)
  1. VANCOMYCIN [Suspect]
     Indication: CELLULITIS
     Route: 042
     Dates: start: 20131014, end: 20131024
  2. VANCOMYCIN [Suspect]
     Indication: PNEUMONIA
     Route: 042
     Dates: start: 20131014, end: 20131024
  3. PIPERACILLIN/TAZOBACTAM [Suspect]
     Route: 042
     Dates: start: 20131014, end: 20131024
  4. METHOTREXATE [Concomitant]

REACTIONS (1)
  - Renal failure acute [None]
